FAERS Safety Report 23669403 (Version 5)
Quarter: 2025Q4

REPORT INFORMATION
  Report Type: Report from Study
  Country: CA (occurrence: CA)
  Receive Date: 20240325
  Receipt Date: 20251229
  Transmission Date: 20260118
  Serious: Yes (Other)
  Sender: BIOGEN
  Company Number: CA-BIOGEN-2024BI01256468

PATIENT
  Age: 51 Year
  Sex: Female

DRUGS (8)
  1. TYSABRI [Suspect]
     Active Substance: NATALIZUMAB
     Indication: Multiple sclerosis
     Dates: start: 20161122
  2. TYSABRI [Suspect]
     Active Substance: NATALIZUMAB
     Dates: start: 20161122, end: 20231123
  3. TYSABRI [Suspect]
     Active Substance: NATALIZUMAB
     Dates: start: 20240123, end: 20240515
  4. TYSABRI [Suspect]
     Active Substance: NATALIZUMAB
     Dates: start: 20240628, end: 20250723
  5. TYSABRI [Suspect]
     Active Substance: NATALIZUMAB
     Dates: start: 20161122
  6. TYSABRI [Suspect]
     Active Substance: NATALIZUMAB
     Dates: start: 20161122
  7. TYSABRI [Suspect]
     Active Substance: NATALIZUMAB
     Dates: start: 20161122
  8. DALFAMPRIDINE [Suspect]
     Active Substance: DALFAMPRIDINE
     Indication: Multiple sclerosis
     Dates: start: 20160415, end: 20220921

REACTIONS (14)
  - Ovarian cancer recurrent [Unknown]
  - Lymphocyte count decreased [Unknown]
  - Feeling abnormal [Recovered/Resolved]
  - Phlebitis [Unknown]
  - Red blood cell nucleated morphology present [Unknown]
  - Drug hypersensitivity [Unknown]
  - Haemoglobin decreased [Unknown]
  - Neutrophil count decreased [Unknown]
  - Red blood cell count decreased [Unknown]
  - White blood cell count decreased [Unknown]
  - Mean platelet volume increased [Unknown]
  - Haematocrit decreased [Unknown]
  - Neutrophil percentage decreased [Unknown]
  - Monocyte percentage increased [Unknown]

NARRATIVE: CASE EVENT DATE: 20251104
